FAERS Safety Report 8697895 (Version 4)
Quarter: 2012Q4

REPORT INFORMATION
  Report Type: 
  Country: US (occurrence: US)
  Receive Date: 20120801
  Receipt Date: 20120919
  Transmission Date: 20130627
  Serious: Yes (Hospitalization)
  Sender: FDA-Public Use
  Company Number: US-UCBSA-062656

PATIENT
  Age: 19 Year
  Sex: Male

DRUGS (2)
  1. CIMZIA [Suspect]
     Indication: CROHN^S DISEASE
     Route: 058
     Dates: start: 20120823
  2. CIMZIA [Suspect]
     Indication: CROHN^S DISEASE
     Route: 058
     Dates: start: 20120308, end: 2012

REACTIONS (2)
  - Pancreatitis [Recovering/Resolving]
  - Crohn^s disease [Unknown]
